FAERS Safety Report 21580318 (Version 1)
Quarter: 2022Q4

REPORT INFORMATION
  Report Type: Report from Study
  Country: US (occurrence: US)
  Receive Date: 20221110
  Receipt Date: 20221110
  Transmission Date: 20230113
  Serious: Yes (Hospitalization, Other)
  Sender: FDA-Public Use
  Company Number: US-ABBVIE-4194769

PATIENT
  Sex: Female

DRUGS (1)
  1. VENCLEXTA [Suspect]
     Active Substance: VENETOCLAX
     Indication: Myelodysplastic syndrome
     Route: 048

REACTIONS (7)
  - Breast cancer female [Unknown]
  - Asthenia [Unknown]
  - Basedow^s disease [Unknown]
  - Hypertension [Unknown]
  - Pneumonia [Unknown]
  - Tremor [Unknown]
  - Hospitalisation [Unknown]
